FAERS Safety Report 8890552 (Version 3)
Quarter: 2013Q1

REPORT INFORMATION
  Report Type: Report from Study
  Country: US (occurrence: US)
  Receive Date: 20121107
  Receipt Date: 20130201
  Transmission Date: 20140127
  Serious: Yes (Death)
  Sender: FDA-Public Use
  Company Number: US-ABBOTT-12P-163-1005278-00

PATIENT
  Sex: Female
  Weight: 48.58 kg

DRUGS (8)
  1. HUMIRA [Suspect]
     Indication: RHEUMATOID ARTHRITIS
     Route: 058
     Dates: start: 20120808, end: 20120926
  2. PLAQUENIL [Concomitant]
     Indication: RHEUMATOID ARTHRITIS
     Dates: end: 20121009
  3. ARAVA [Concomitant]
     Indication: RHEUMATOID ARTHRITIS
     Dates: end: 20121009
  4. PLAVIX [Concomitant]
     Indication: PERIPHERAL VASCULAR DISORDER
     Dates: end: 20121009
  5. SYNTHROID [Concomitant]
     Indication: HYPOTHYROIDISM
     Dates: end: 20121009
  6. DIGOXIN [Concomitant]
     Indication: ARRHYTHMIA
     Dosage: 0.125 1/2 ONCE A DAY
     Dates: end: 20121009
  7. ASA [Concomitant]
     Indication: PERIPHERAL VASCULAR DISORDER
     Route: 048
     Dates: end: 20121009
  8. ULTRAM [Concomitant]
     Indication: PRODUCT USED FOR UNKNOWN INDICATION
     Route: 048
     Dates: end: 20121009

REACTIONS (2)
  - Dementia [Fatal]
  - Failure to thrive [Fatal]
